FAERS Safety Report 4713610-9 (Version None)
Quarter: 2005Q3

REPORT INFORMATION
  Report Type: 
  Country: None (occurrence: None)
  Receive Date: 20050711
  Receipt Date: 20050628
  Transmission Date: 20060218
  Serious: Yes (Hospitalization)
  Sender: FDA-Public Use
  Company Number: 2005094833

PATIENT
  Age: 73 Year
  Sex: Female

DRUGS (7)
  1. DOXORUBICIN HYDROCHLORIDE [Suspect]
     Indication: BREAST CANCER METASTATIC
     Dosage: 85 MG, CYCLICAL, INTRAVENOUS
     Route: 042
     Dates: start: 20040412, end: 20050404
  2. DOXORUBICIN HYDROCHLORIDE [Suspect]
     Indication: METASTASES TO BONE
     Dosage: 85 MG, CYCLICAL, INTRAVENOUS
     Route: 042
     Dates: start: 20040412, end: 20050404
  3. CYCLOPHOSPHAMIDE [Suspect]
     Indication: BREAST CANCER METASTATIC
     Dosage: 850 MG, CYCLICAL, INTRAVENOUS
     Route: 042
     Dates: start: 20040412, end: 20050404
  4. CYCLOPHOSPHAMIDE [Suspect]
     Indication: METASTASES TO BONE
     Dosage: 850 MG, CYCLICAL, INTRAVENOUS
     Route: 042
     Dates: start: 20040412, end: 20050404
  5. FLUOROURACIL [Suspect]
     Indication: BREAST CANCER METASTATIC
     Dosage: 850 MG, CYCLICAL,  INTRAVENOUS
     Route: 042
     Dates: start: 20040412, end: 20050404
  6. ZOLEDRONIC ACID (ZOLEDRONIC ACID) [Suspect]
     Indication: BREAST CANCER METASTATIC
     Dosage: 4 MG, CYCLIC, INTRAVENOUS
     Route: 042
     Dates: start: 20030515, end: 20050606
  7. ZOLEDRONIC ACID (ZOLEDRONIC ACID) [Suspect]
     Indication: METASTASES TO BONE
     Dosage: 4 MG, CYCLIC, INTRAVENOUS
     Route: 042
     Dates: start: 20030515, end: 20050606

REACTIONS (4)
  - BONE DISORDER [None]
  - BONE PAIN [None]
  - IMPAIRED HEALING [None]
  - OSTEONECROSIS [None]
